FAERS Safety Report 12810132 (Version 1)
Quarter: 2016Q4

REPORT INFORMATION
  Report Type: Spontaneous
  Country: US (occurrence: US)
  Receive Date: 20161005
  Receipt Date: 20161005
  Transmission Date: 20170207
  Serious: No
  Sender: FDA-Public Use
  Company Number: US-PFIZER INC-2016459223

PATIENT
  Age: 75 Year
  Sex: Female

DRUGS (4)
  1. LOTEMAX [Concomitant]
     Active Substance: LOTEPREDNOL ETABONATE
     Indication: INFLAMMATION
     Dosage: 2 GTT, DAILY/1 DROP EACH EYE UP TO 4 TIMES PER DAY
     Dates: start: 2008
  2. LOTEMAX [Concomitant]
     Active Substance: LOTEPREDNOL ETABONATE
     Indication: DRY EYE
  3. ARMOUR THYROID [Concomitant]
     Active Substance: THYROID, PORCINE
     Indication: HYPOTHYROIDISM
     Dosage: 60 MG, 1X/DAY
     Dates: start: 2004
  4. CORTISONE [Suspect]
     Active Substance: CORTISONE\HYDROCORTISONE
     Indication: PAIN
     Dosage: 5 MG, 2X/DAY
     Dates: start: 201607, end: 201607

REACTIONS (2)
  - Intentional product use issue [Unknown]
  - Abdominal discomfort [Unknown]
